FAERS Safety Report 7119456-9 (Version None)
Quarter: 2010Q4

REPORT INFORMATION
  Report Type: 
  Country: None (occurrence: None)
  Receive Date: 20101123
  Receipt Date: 20101117
  Transmission Date: 20110411
  Serious: Yes (Other)
  Sender: FDA-Public Use
  Company Number: US-JNJFOC-20100805498

PATIENT
  Sex: Male
  Weight: 9.07 kg

DRUGS (9)
  1. CONCENTRATED TYLENOL INFANT DROPS [Suspect]
     Indication: PYREXIA
     Dosage: RECOMMENDED DOSE EVERY 8 HOURS ALTERNATING WITH ANOTHER ACETAMINOPHEN PRODUCT
     Route: 048
  2. CONCENTRATED TYLENOL INFANT DROPS [Suspect]
     Indication: TEETHING
     Dosage: RECOMMENDED DOSE EVERY 8 HOURS ALTERNATING WITH ANOTHER ACETAMINOPHEN PRODUCT
     Route: 048
  3. CONCENTRATED TYLENOL INFANT DROPS [Suspect]
     Indication: MALAISE
     Dosage: RECOMMENDED DOSE EVERY 8 HOURS ALTERNATING WITH ANOTHER ACETAMINOPHEN PRODUCT
     Route: 048
  4. CONCENTRATED MOTRIN INFANTS DROPS [Suspect]
     Indication: PYREXIA
     Dosage: RECOMMENDED DOSE EVERY 8 HOURS ALTERNATING WITH ANOTHER ACETAMINOPHEN PRODUCT
     Route: 048
  5. CONCENTRATED MOTRIN INFANTS DROPS [Suspect]
     Indication: TEETHING
     Dosage: RECOMMENDED DOSE EVERY 8 HOURS ALTERNATING WITH ANOTHER ACETAMINOPHEN PRODUCT
     Route: 048
  6. CONCENTRATED MOTRIN INFANTS DROPS [Suspect]
     Indication: MALAISE
     Dosage: RECOMMENDED DOSE EVERY 8 HOURS ALTERNATING WITH ANOTHER ACETAMINOPHEN PRODUCT
     Route: 048
  7. CONCENTRATED TYLENOL INFANT DROPS [Suspect]
     Indication: PYREXIA
     Dosage: RECOMMENDED DOSE EVERY 8 HOURS ALTERNATING WITH ANOTHER ACETAMINOPHEN PRODUCT
     Route: 048
  8. CONCENTRATED TYLENOL INFANT DROPS [Suspect]
     Indication: TEETHING
     Dosage: RECOMMENDED DOSE EVERY 8 HOURS ALTERNATING WITH ANOTHER ACETAMINOPHEN PRODUCT
     Route: 048
  9. CONCENTRATED TYLENOL INFANT DROPS [Suspect]
     Indication: MALAISE
     Dosage: RECOMMENDED DOSE EVERY 8 HOURS ALTERNATING WITH ANOTHER ACETAMINOPHEN PRODUCT
     Route: 048

REACTIONS (2)
  - CLOSTRIDIUM DIFFICILE COLITIS [None]
  - PRODUCT QUALITY ISSUE [None]
